FAERS Safety Report 23472229 (Version 1)
Quarter: 2024Q1

REPORT INFORMATION
  Report Type: Spontaneous
  Country: TR (occurrence: TR)
  Receive Date: 20240202
  Receipt Date: 20240202
  Transmission Date: 20240409
  Serious: Yes (Other)
  Sender: FDA-Public Use
  Company Number: TR-JNJFOC-20240184940

PATIENT

DRUGS (2)
  1. REMICADE [Suspect]
     Active Substance: INFLIXIMAB
     Indication: Product used for unknown indication
     Route: 041
  2. SIMPONI [Suspect]
     Active Substance: GOLIMUMAB
     Indication: Product used for unknown indication
     Route: 058

REACTIONS (13)
  - Cervical dysplasia [Unknown]
  - Pemphigoid [Unknown]
  - Neutropenia [Unknown]
  - Pulmonary tuberculosis [Unknown]
  - Anaphylactic reaction [Unknown]
  - Kaposi^s sarcoma [Unknown]
  - Blood disorder [Unknown]
  - Dermatitis herpetiformis [Unknown]
  - Dermatitis allergic [Unknown]
  - Palmoplantar pustulosis [Unknown]
  - Psoriasis [Unknown]
  - Vasculitis [Unknown]
  - Infusion related reaction [Unknown]
